FAERS Safety Report 13650075 (Version 2)
Quarter: 2017Q4

REPORT INFORMATION
  Report Type: Spontaneous
  Country: US (occurrence: US)
  Receive Date: 20170614
  Receipt Date: 20171122
  Transmission Date: 20180320
  Serious: No
  Sender: FDA-Public Use
  Company Number: US-PFIZER INC-2017253848

PATIENT
  Age: 43 Year
  Sex: Female
  Weight: 72.57 kg

DRUGS (2)
  1. XELJANZ [Suspect]
     Active Substance: TOFACITINIB CITRATE
     Indication: RHEUMATOID ARTHRITIS
     Dosage: 5 MG, 2X/DAY
     Route: 048
     Dates: start: 201608
  2. XELJANZ [Suspect]
     Active Substance: TOFACITINIB CITRATE
     Dosage: 5 MG, 2X/DAY
     Dates: start: 201703

REACTIONS (4)
  - Joint warmth [Unknown]
  - Infection [Unknown]
  - Arthralgia [Unknown]
  - Joint swelling [Unknown]

NARRATIVE: CASE EVENT DATE: 201704
